FAERS Safety Report 13414574 (Version 2)
Quarter: 2017Q4

REPORT INFORMATION
  Report Type: Spontaneous
  Country: US (occurrence: US)
  Receive Date: 20170406
  Receipt Date: 20171123
  Transmission Date: 20180320
  Serious: No
  Sender: FDA-Public Use
  Company Number: US-JNJFOC-20170318534

PATIENT
  Sex: Male

DRUGS (5)
  1. RISPERDAL [Suspect]
     Active Substance: RISPERIDONE
     Indication: BIPOLAR DISORDER
     Dosage: VARYING FREQUENCY INCLUDED (UNSPECIFIED FREQUENCY AND TWICE DAILY)
     Route: 048
     Dates: start: 20060819, end: 20081010
  2. RISPERIDONE. [Suspect]
     Active Substance: RISPERIDONE
     Indication: BIPOLAR DISORDER
     Dosage: VARYING DOSES OF 01 MG, 03 MG AND 04 MG AND VARYING FREQUENCY(UNSPECIFIED/TWICE DAILY/ONCE A DAY)
     Route: 048
     Dates: start: 20081021, end: 20130425
  3. RISPERDAL [Suspect]
     Active Substance: RISPERIDONE
     Indication: BIPOLAR DISORDER
     Route: 048
     Dates: end: 20130925
  4. RISPERIDONE. [Suspect]
     Active Substance: RISPERIDONE
     Indication: BIPOLAR DISORDER
     Route: 048
     Dates: start: 20060706
  5. RISPERDAL [Suspect]
     Active Substance: RISPERIDONE
     Indication: BIPOLAR DISORDER
     Dosage: VARYING DOSES OF 01 MG, 02 MG AND 03 MG AND VARYING FREQUENCY(UNSPECIFIED/TWICE DAILY/ONCE A DAY)
     Route: 048
     Dates: start: 19990407, end: 20060331

REACTIONS (2)
  - Emotional disorder [Unknown]
  - Gynaecomastia [Unknown]
